FAERS Safety Report 9818192 (Version 1)
Quarter: 2014Q1

REPORT INFORMATION
  Report Type: Spontaneous
  Country: US (occurrence: None)
  Receive Date: 20140113
  Receipt Date: 20140113
  Transmission Date: 20141002
  Serious: Yes (Hospitalization)
  Sender: FDA-Public Use
  Company Number: None

PATIENT
  Age: 75 Year
  Sex: Female
  Weight: 76 kg

DRUGS (1)
  1. 5-FU (FLUOROURACIL) [Suspect]
     Dates: end: 20131224

REACTIONS (5)
  - Chest discomfort [None]
  - Cardiac septal hypertrophy [None]
  - Non-cardiac chest pain [None]
  - Limb discomfort [None]
  - Neck pain [None]
